FAERS Safety Report 12579967 (Version 2)
Quarter: 2016Q3

REPORT INFORMATION
  Report Type: Report from Study
  Country: US (occurrence: US)
  Receive Date: 20160721
  Receipt Date: 20160928
  Transmission Date: 20161109
  Serious: Yes (Hospitalization, Other)
  Sender: FDA-Public Use
  Company Number: US-REGENERON PHARMACEUTICALS, INC.-2016-19460

PATIENT

DRUGS (5)
  1. EYLEA [Suspect]
     Active Substance: AFLIBERCEPT
     Indication: DIABETIC EYE DISEASE
     Dosage: 2 MG MILLIGRAM(S)/0.05 ML, EVERY 6 TO 8 WEEKS, BOTH EYES
     Route: 031
     Dates: start: 20150526, end: 20150526
  2. EYLEA [Suspect]
     Active Substance: AFLIBERCEPT
     Dosage: 2 MG MILLIGRAM(S)/0.05 ML, EVERY 6 TO 8 WEEKS, BOTH EYES
     Route: 031
     Dates: start: 20150818, end: 20150818
  3. EYLEA [Suspect]
     Active Substance: AFLIBERCEPT
     Indication: DIABETIC RETINOPATHY
     Dosage: 2 MG MILLIGRAM(S)/0.05 ML, EVERY 6 TO 8 WEEKS, BOTH EYES
     Route: 031
     Dates: start: 20150707, end: 20150707
  4. EYLEA [Suspect]
     Active Substance: AFLIBERCEPT
     Dosage: 2 MG MILLIGRAM(S)/0.05 ML, EVERY 6 TO 8 WEEKS, BOTH EYES
     Route: 031
     Dates: start: 20151013, end: 20151013
  5. EYLEA [Suspect]
     Active Substance: AFLIBERCEPT
     Indication: DIABETIC RETINAL OEDEMA
     Dosage: 2 MG MILLIGRAM(S)/0.05 ML, EVERY 6 TO 8 WEEKS, RIGHT EYE
     Route: 031
     Dates: start: 20150313, end: 20151013

REACTIONS (1)
  - Hospitalisation [Unknown]
